FAERS Safety Report 11849248 (Version 1)
Quarter: 2015Q4

REPORT INFORMATION
  Report Type: Spontaneous
  Country: US (occurrence: None)
  Receive Date: 20151217
  Receipt Date: 20151217
  Transmission Date: 20160305
  Serious: Yes (Other)
  Sender: FDA-Public Use
  Company Number: None

PATIENT
  Age: 25 Year
  Sex: Female
  Weight: 68.04 kg

DRUGS (3)
  1. IMPLANON [Suspect]
     Active Substance: ETONOGESTREL
  2. CPAP [Concomitant]
     Active Substance: DEVICE
  3. SEROQUEL [Concomitant]
     Active Substance: QUETIAPINE FUMARATE

REACTIONS (4)
  - Vaginal haemorrhage [None]
  - Infertility [None]
  - Menstruation irregular [None]
  - Ovarian cyst [None]

NARRATIVE: CASE EVENT DATE: 20150310
